FAERS Safety Report 10620393 (Version 1)
Quarter: 2014Q4

REPORT INFORMATION
  Report Type: Spontaneous
  Country: GR (occurrence: GR)
  Receive Date: 20141202
  Receipt Date: 20141202
  Transmission Date: 20150529
  Serious: Yes (Life-Threatening, Other)
  Sender: FDA-Public Use
  Company Number: GR-MERCK-1412GRC000859

PATIENT

DRUGS (3)
  1. TEMOZOLOMIDE. [Suspect]
     Active Substance: TEMOZOLOMIDE
     Dosage: (150-200 MG/M2 DAILY FOR 5 DAYS EVERY 28 DAYS) AVERAGE OF 6 CYCLES (RANGE 1-12)
     Route: 048
  2. TEMOZOLOMIDE. [Suspect]
     Active Substance: TEMOZOLOMIDE
     Indication: GLIOBLASTOMA MULTIFORME
     Dosage: DOSE 75MG/M2 (7 DAYS PER WEEK FROM THE FIRST TO THE LAST DAY OF RT)
     Route: 048
  3. ANTIMICROBIAL (UNSPECIFIED) [Concomitant]
     Active Substance: UNSPECIFIED INGREDIENT
     Indication: ANTIFUNGAL PROPHYLAXIS

REACTIONS (1)
  - Haematotoxicity [Unknown]
